FAERS Safety Report 4317922-2 (Version None)
Quarter: 2004Q1

REPORT INFORMATION
  Report Type: 
  Country: None (occurrence: None)
  Receive Date: 20040316
  Receipt Date: 20040305
  Transmission Date: 20041129
  Serious: Yes (Hospitalization)
  Sender: FDA-Public Use
  Company Number: US-ROCHE-361168

PATIENT
  Age: 15 Year
  Sex: Male

DRUGS (2)
  1. ACCUTANE [Suspect]
     Indication: DRUG USE FOR UNKNOWN INDICATION
     Dosage: SECOND COURSE.
     Route: 048
  2. ACCUTANE [Suspect]
     Dosage: FIRST COURSE.
     Route: 048

REACTIONS (2)
  - PARANOIA [None]
  - PSYCHOTIC DISORDER [None]
